FAERS Safety Report 8099778-8 (Version None)
Quarter: 2012Q1

REPORT INFORMATION
  Report Type: 
  Country: None (occurrence: None)
  Receive Date: 20120129
  Receipt Date: 20110919
  Transmission Date: 20120608
  Serious: No
  Sender: FDA-Public Use
  Company Number: US-ABBOTT-11P-163-0855588-00

PATIENT
  Sex: Male
  Weight: 69.462 kg

DRUGS (3)
  1. HUMIRA [Suspect]
     Indication: CROHN'S DISEASE
     Route: 058
     Dates: start: 20110914
  2. HUMIRA [Suspect]
     Dosage: 80 MG
     Dates: start: 20110831
  3. HUMIRA [Suspect]
     Dosage: 160 MG LOADING DOSE
     Dates: start: 20110817

REACTIONS (2)
  - INCORRECT DOSE ADMINISTERED [None]
  - OROPHARYNGEAL PAIN [None]
